FAERS Safety Report 4274885-6 (Version None)
Quarter: 2004Q1

REPORT INFORMATION
  Report Type: 
  Country: None (occurrence: None)
  Receive Date: 20040116
  Receipt Date: 20040106
  Transmission Date: 20041129
  Serious: Yes (Hospitalization)
  Sender: FDA-Public Use
  Company Number: MK200401-0087-1

PATIENT
  Age: 66 Year
  Sex: Female

DRUGS (5)
  1. ANAFRANIL CAP [Suspect]
     Dosage: 75 MG, TID
     Dates: start: 20030604, end: 20030703
  2. ZYPREXA [Suspect]
  3. TRANXENE [Concomitant]
  4. LEXOMIL (BROMAZEPAM) [Concomitant]
  5. ANAFRANIL IV [Concomitant]

REACTIONS (6)
  - AGITATION [None]
  - BLOOD PRESSURE ABNORMAL [None]
  - CARDIAC FAILURE [None]
  - HYPERHIDROSIS [None]
  - MEDICATION ERROR [None]
  - TACHYPNOEA [None]
